FAERS Safety Report 4908442-2 (Version None)
Quarter: 2006Q1

REPORT INFORMATION
  Report Type: 
  Country: None (occurrence: None)
  Receive Date: 20060210
  Receipt Date: 20050620
  Transmission Date: 20060701
  Serious: Yes (Other)
  Sender: FDA-Public Use
  Company Number: US-GLAXOSMITHKLINE-A0563841A

PATIENT
  Sex: Male

DRUGS (2)
  1. PAXIL CR [Suspect]
     Indication: ANXIETY
     Route: 048
  2. PAROXETINE HYDROCHLORIDE [Suspect]
     Indication: ANXIETY
     Route: 065

REACTIONS (2)
  - DRUG INEFFECTIVE [None]
  - EPILEPSY [None]
